FAERS Safety Report 8008195-8 (Version None)
Quarter: 2011Q4

REPORT INFORMATION
  Report Type: 
  Country: None (occurrence: None)
  Receive Date: 20111222
  Receipt Date: 20111222
  Transmission Date: 20120403
  Serious: Yes (Hospitalization)
  Sender: FDA-Public Use
  Company Number: None

PATIENT
  Sex: Female
  Weight: 61.2356 kg

DRUGS (4)
  1. SEROQUEL [Suspect]
     Indication: BLOOD SODIUM DECREASED
     Dosage: 150 MG 1 A DAY MOUTH
     Route: 048
     Dates: start: 20110501
  2. SEROQUEL [Suspect]
     Indication: MANIA
     Dosage: 150 MG 1 A DAY MOUTH
     Route: 048
     Dates: start: 20110501
  3. SEROQUEL [Suspect]
     Indication: BLOOD SODIUM DECREASED
     Dosage: 150 MG 1 A DAY MOUTH
     Route: 048
     Dates: start: 20090601
  4. SEROQUEL [Suspect]
     Indication: MANIA
     Dosage: 150 MG 1 A DAY MOUTH
     Route: 048
     Dates: start: 20090601

REACTIONS (20)
  - ABDOMINAL PAIN UPPER [None]
  - FATIGUE [None]
  - CARDIAC DISORDER [None]
  - CONFUSIONAL STATE [None]
  - HEADACHE [None]
  - GASTROINTESTINAL DISORDER [None]
  - MYALGIA [None]
  - FEELING OF DESPAIR [None]
  - BLOOD SODIUM DECREASED [None]
  - LETHARGY [None]
  - INSOMNIA [None]
  - BLOOD CHOLESTEROL INCREASED [None]
  - DIVERTICULITIS [None]
  - ORTHOSTATIC HYPERTENSION [None]
  - IRRITABLE BOWEL SYNDROME [None]
  - HUNGER [None]
  - MANIA [None]
  - TINNITUS [None]
  - DIZZINESS [None]
  - BLOOD GLUCOSE INCREASED [None]
